FAERS Safety Report 15596646 (Version 1)
Quarter: 2018Q4

REPORT INFORMATION
  Report Type: Spontaneous
  Country: US (occurrence: US)
  Receive Date: 20181108
  Receipt Date: 20181108
  Transmission Date: 20190205
  Serious: Yes (Other)
  Sender: FDA-Public Use
  Company Number: US-AMGEN-USASP2018154601

PATIENT
  Age: 73 Year
  Sex: Female

DRUGS (13)
  1. VITAMIN D [Concomitant]
     Active Substance: CHOLECALCIFEROL
     Dosage: 2000 UNIT, QD
  2. LOVASTATIN. [Concomitant]
     Active Substance: LOVASTATIN
     Dosage: 10 MG, QD
  3. CHONDROITIN [Concomitant]
     Active Substance: CHONDROITIN
     Dosage: 2CAPS, QD
  4. VITAMIN B6 [Concomitant]
     Active Substance: PYRIDOXINE HYDROCHLORIDE
     Dosage: 50 MG, QD
  5. MIRALAX [Concomitant]
     Active Substance: POLYETHYLENE GLYCOL 3350
     Dosage: 8 MG, QD
  6. PROLIA [Suspect]
     Active Substance: DENOSUMAB
     Indication: OSTEOPOROSIS POSTMENOPAUSAL
     Dosage: UNK
     Route: 065
     Dates: start: 201806
  7. PHILLIPS [Concomitant]
     Active Substance: DOCUSATE SODIUM
     Dosage: UNK UNK, QD
  8. CALCIUM [Concomitant]
     Active Substance: CALCIUM
     Dosage: 2 QD
  9. HYALURONIC ACID [Concomitant]
     Active Substance: HYALURONIC ACID
     Dosage: 2CAPS QD
  10. TRETINOIN. [Concomitant]
     Active Substance: TRETINOIN
     Dosage: 0.05 %, UNK
  11. NAPROXEN. [Concomitant]
     Active Substance: NAPROXEN
     Dosage: 220 MG, AS NECESSARY
  12. ESTRACE [Concomitant]
     Active Substance: ESTRADIOL
     Dosage: 1 G, TWO TIMES A WEEK
     Route: 067
  13. VOLTAREN [Concomitant]
     Active Substance: DICLOFENAC SODIUM
     Dosage: UNK UNK, AS NECESSARY
     Route: 061

REACTIONS (3)
  - Periodontal disease [Not Recovered/Not Resolved]
  - Memory impairment [Not Recovered/Not Resolved]
  - Nasopharyngitis [Recovered/Resolved]

NARRATIVE: CASE EVENT DATE: 201810
